FAERS Safety Report 7397443-3 (Version None)
Quarter: 2011Q2

REPORT INFORMATION
  Report Type: 
  Country: None (occurrence: None)
  Receive Date: 20110406
  Receipt Date: 20110323
  Transmission Date: 20111010
  Serious: Yes (Other)
  Sender: FDA-Public Use
  Company Number: PHHY2011US24797

PATIENT
  Sex: Female

DRUGS (1)
  1. EXJADE [Suspect]
     Dosage: 1500 MG, DAILY
     Route: 048
     Dates: start: 20110307

REACTIONS (4)
  - GAIT DISTURBANCE [None]
  - VISUAL IMPAIRMENT [None]
  - VISION BLURRED [None]
  - HYPOACUSIS [None]
